FAERS Safety Report 14841219 (Version 1)
Quarter: 2018Q2

REPORT INFORMATION
  Report Type: Report from Study
  Country: DE (occurrence: DE)
  Receive Date: 20180503
  Receipt Date: 20180503
  Transmission Date: 20180711
  Serious: Yes (Other)
  Sender: FDA-Public Use
  Company Number: DE-ACCORD-066417

PATIENT
  Sex: Female
  Weight: 64.4 kg

DRUGS (5)
  1. GRANISETRON [Concomitant]
     Active Substance: GRANISETRON
     Indication: PROPHYLAXIS
     Dosage: 15 MINUTES PRIOR TO CHEMOTHERAPY
  2. ONCOFOLIC [Suspect]
     Active Substance: FOLATE SODIUM
     Indication: ADENOCARCINOMA OF COLON
     Dosage: LAST ADMINISTRATION BEFORE ONSET: 03-JUL-2017
     Route: 042
     Dates: start: 20170515
  3. OXALIPLATIN. [Concomitant]
     Active Substance: OXALIPLATIN
     Indication: ADENOCARCINOMA OF COLON
     Dosage: LAST ADMINISTRATION BEFORE ONSET: 29-MAY-2017
     Route: 042
     Dates: start: 20170515
  4. VERGENTAN [Concomitant]
     Active Substance: ALIZAPRIDE HYDROCHLORIDE
     Indication: PROPHYLAXIS
     Dosage: 30 MINUTES BEFORE CHEMOTHERAPY
  5. FLUOROURACIL. [Suspect]
     Active Substance: FLUOROURACIL
     Indication: ADENOCARCINOMA OF COLON
     Dosage: LAST ADMINISTRATION BEFORE ONSET: 03-JUL-2017
     Route: 042
     Dates: start: 20170515

REACTIONS (1)
  - Pyrexia [Recovered/Resolved]

NARRATIVE: CASE EVENT DATE: 20170709
